FAERS Safety Report 20564754 (Version 1)
Quarter: 2022Q1

REPORT INFORMATION
  Report Type: Spontaneous
  Country: JP (occurrence: JP)
  Receive Date: 20220308
  Receipt Date: 20220308
  Transmission Date: 20220423
  Serious: Yes (Other)
  Sender: FDA-Public Use
  Company Number: JP-ASTELLAS-2022JP003766

PATIENT
  Sex: Female

DRUGS (1)
  1. MIRABEGRON [Suspect]
     Active Substance: MIRABEGRON
     Indication: Product used for unknown indication
     Dosage: UNK UNK, UNKNOWN FREQ.
     Route: 048

REACTIONS (8)
  - Arrhythmia [Unknown]
  - Pollakiuria [Unknown]
  - Cystitis [Unknown]
  - Fall [Unknown]
  - Tendon rupture [Unknown]
  - Calcinosis [Unknown]
  - Rash [Unknown]
  - Gait disturbance [Unknown]
